FAERS Safety Report 4464161-0 (Version None)
Quarter: 2004Q3

REPORT INFORMATION
  Report Type: 
  Country: None (occurrence: None)
  Receive Date: 20040930
  Receipt Date: 20040930
  Transmission Date: 20050211
  Serious: Yes (Other)
  Sender: FDA-Public Use
  Company Number: None

PATIENT
  Sex: Female
  Weight: 103.8737 kg

DRUGS (3)
  1. TOPAMAX [Suspect]
     Indication: MIGRAINE
     Dosage: SEE IMAGE
  2. ZYRTEC [Concomitant]
  3. CIMETIDINE [Concomitant]

REACTIONS (7)
  - EYE IRRITATION [None]
  - EYE PAIN [None]
  - LENS DISLOCATION [None]
  - MYOPIA [None]
  - OCULAR DISCOMFORT [None]
  - VISION BLURRED [None]
  - VISUAL ACUITY REDUCED [None]
